FAERS Safety Report 19006377 (Version 2)
Quarter: 2021Q2

REPORT INFORMATION
  Report Type: Report from Study
  Country: None (occurrence: US)
  Receive Date: 20210315
  Receipt Date: 20210424
  Transmission Date: 20210717
  Serious: Yes (Hospitalization, Other)
  Sender: FDA-Public Use
  Company Number: US-ABBVIE-21K-163-3812388-00

PATIENT
  Sex: Male

DRUGS (2)
  1. VENCLEXTA [Suspect]
     Active Substance: VENETOCLAX
     Indication: ACUTE MYELOID LEUKAEMIA
     Route: 048
     Dates: start: 20200624
  2. VENCLEXTA [Suspect]
     Active Substance: VENETOCLAX
     Route: 048

REACTIONS (9)
  - Swelling [Unknown]
  - Blindness unilateral [Unknown]
  - Ocular discomfort [Not Recovered/Not Resolved]
  - Papilloedema [Not Recovered/Not Resolved]
  - Depression [Not Recovered/Not Resolved]
  - Hospitalisation [Not Recovered/Not Resolved]
  - Leukaemia [Not Recovered/Not Resolved]
  - Optic nerve disorder [Unknown]
  - Alopecia [Not Recovered/Not Resolved]

NARRATIVE: CASE EVENT DATE: 2021
